FAERS Safety Report 9466578 (Version 1)
Quarter: 2013Q3

REPORT INFORMATION
  Report Type: Spontaneous
  Country: HU (occurrence: HU)
  Receive Date: 20130820
  Receipt Date: 20130820
  Transmission Date: 20140515
  Serious: Yes (Other)
  Sender: FDA-Public Use
  Company Number: HU-JNJFOC-20130805744

PATIENT
  Sex: 0

DRUGS (4)
  1. INFLIXIMAB, RECOMBINANT [Suspect]
     Indication: CROHN^S DISEASE
     Route: 042
  2. ADALIMUMAB [Suspect]
     Indication: CROHN^S DISEASE
     Route: 065
  3. AZATHIOPRINE [Concomitant]
     Route: 065
  4. STEROIDS NOS [Concomitant]
     Route: 065

REACTIONS (7)
  - Herpes simplex [Unknown]
  - Cytomegalovirus colitis [Unknown]
  - Psoriasis [Unknown]
  - Arthritis [Unknown]
  - Rash pustular [Unknown]
  - Drug effect decreased [Unknown]
  - Hypersensitivity [Unknown]
